FAERS Safety Report 14196070 (Version 2)
Quarter: 2019Q1

REPORT INFORMATION
  Report Type: Spontaneous
  Country: US (occurrence: US)
  Receive Date: 20171116
  Receipt Date: 20190313
  Transmission Date: 20190417
  Serious: No
  Sender: FDA-Public Use
  Company Number: US-BAUSCH-BL-2017-023365

PATIENT
  Age: 48 Year
  Sex: Female
  Weight: 74.91 kg

DRUGS (2)
  1. XENAZINE [Suspect]
     Active Substance: TETRABENAZINE
     Indication: OFF LABEL USE
  2. XENAZINE [Suspect]
     Active Substance: TETRABENAZINE
     Indication: DYSTONIA
     Dosage: STARTED 1 TO 2 YEARS PRIOR TO INITIAL REPORT
     Route: 048
     Dates: end: 20170714

REACTIONS (5)
  - Drug withdrawal syndrome [Recovering/Resolving]
  - Product dose omission [Unknown]
  - Malaise [Recovering/Resolving]
  - Off label use [Unknown]
  - Muscle twitching [Unknown]

NARRATIVE: CASE EVENT DATE: 2017
